FAERS Safety Report 6820501-6 (Version None)
Quarter: 2010Q3

REPORT INFORMATION
  Report Type: 
  Country: None (occurrence: None)
  Receive Date: 20100707
  Receipt Date: 20100624
  Transmission Date: 20110219
  Serious: Yes (Other)
  Sender: FDA-Public Use
  Company Number: US-BIOGENIDEC-2010BI018993

PATIENT
  Age: 49 Year
  Sex: Female

DRUGS (4)
  1. AVONEX [Suspect]
     Indication: MULTIPLE SCLEROSIS
     Route: 030
     Dates: start: 20100213, end: 20100313
  2. LAMICTAL [Concomitant]
     Indication: CONVULSION PROPHYLAXIS
  3. ZARONTIN [Concomitant]
     Indication: CONVULSION PROPHYLAXIS
  4. TRAMADOL [Concomitant]

REACTIONS (1)
  - COMPLEX PARTIAL SEIZURES [None]
